FAERS Safety Report 10865697 (Version 2)
Quarter: 2015Q1

REPORT INFORMATION
  Report Type: Spontaneous
  Country: US (occurrence: US)
  Receive Date: 20150224
  Receipt Date: 20150327
  Transmission Date: 20150721
  Serious: Yes (Other)
  Sender: FDA-Public Use
  Company Number: US-JNJFOC-20150210190

PATIENT
  Age: 61 Year
  Sex: Male
  Weight: 122.47 kg

DRUGS (2)
  1. DURAGESIC [Suspect]
     Active Substance: FENTANYL
     Indication: PAIN
     Route: 062
     Dates: start: 2007, end: 2010
  2. DURAGESIC [Suspect]
     Active Substance: FENTANYL
     Indication: PAIN
     Route: 062
     Dates: start: 2004, end: 200512

REACTIONS (4)
  - Pain [Not Recovered/Not Resolved]
  - Cardiac failure congestive [Unknown]
  - Hip surgery [Unknown]
  - Renal failure [Unknown]

NARRATIVE: CASE EVENT DATE: 200512
